FAERS Safety Report 6526706-6 (Version None)
Quarter: 2010Q1

REPORT INFORMATION
  Report Type: 
  Country: None (occurrence: None)
  Receive Date: 20100104
  Receipt Date: 20100104
  Transmission Date: 20100710
  Serious: Yes (Other)
  Sender: FDA-Public Use
  Company Number: None

PATIENT
  Sex: Female
  Weight: 86.1834 kg

DRUGS (1)
  1. TOVIAZ [Suspect]
     Indication: BLADDER DISORDER
     Dosage: 4MG 1 A DAY MOUTH (USED TWICE)
     Route: 048

REACTIONS (3)
  - EPISTAXIS [None]
  - EYE PAIN [None]
  - HEADACHE [None]
